FAERS Safety Report 4478017-0 (Version None)
Quarter: 2004Q3

REPORT INFORMATION
  Report Type: 
  Country: None (occurrence: None)
  Receive Date: 20040923
  Receipt Date: 20040816
  Transmission Date: 20050211
  Serious: No
  Sender: FDA-Public Use
  Company Number: USA040874413

PATIENT
  Age: 70 Year
  Sex: Female
  Weight: 75 kg

DRUGS (2)
  1. FORTEO [Suspect]
     Indication: OSTEOPOROSIS
     Dates: start: 20040803
  2. EVISTA [Suspect]

REACTIONS (2)
  - SENSORY DISTURBANCE [None]
  - VAGINAL HAEMORRHAGE [None]
